FAERS Safety Report 9605128 (Version 2)
Quarter: 2013Q4

REPORT INFORMATION
  Report Type: Spontaneous
  Country: DE (occurrence: DE)
  Receive Date: 20131008
  Receipt Date: 20131016
  Transmission Date: 20140711
  Serious: Yes (Other)
  Sender: FDA-Public Use
  Company Number: DE-TEVA-436127ISR

PATIENT
  Age: 57 Year
  Sex: Female
  Weight: 60 kg

DRUGS (6)
  1. PACLITAXEL [Suspect]
     Indication: OVARIAN CANCER
     Dosage: 723 MILLIGRAM DAILY;
     Dates: start: 20130815
  2. CARBOPLATIN [Suspect]
     Indication: OVARIAN CANCER
     Dosage: 294 MILLIGRAM DAILY;
     Route: 042
     Dates: start: 20130815
  3. TAVEGIL [Concomitant]
     Route: 042
     Dates: start: 20130815
  4. RANITIDIN [Concomitant]
     Route: 042
     Dates: start: 20130815
  5. DEXAMETHASONE [Concomitant]
     Route: 042
  6. GRANISETRON [Concomitant]
     Route: 042
     Dates: start: 20130815

REACTIONS (1)
  - Reversible ischaemic neurological deficit [Recovered/Resolved]
